FAERS Safety Report 8533979-7 (Version None)
Quarter: 2012Q3

REPORT INFORMATION
  Report Type: 
  Country: None (occurrence: None)
  Receive Date: 20120724
  Receipt Date: 20120717
  Transmission Date: 20120928
  Serious: Yes (Other)
  Sender: FDA-Public Use
  Company Number: US-US-EMD SERONO, INC.-7136645

PATIENT
  Sex: Female
  Weight: 100 kg

DRUGS (2)
  1. NOVANTRONE [Suspect]
     Indication: MULTIPLE SCLEROSIS
     Route: 042
     Dates: start: 20010628, end: 20011227
  2. NOVANTRONE [Suspect]
     Route: 042
     Dates: end: 20020510

REACTIONS (2)
  - EJECTION FRACTION DECREASED [None]
  - MENSTRUAL DISORDER [None]
